FAERS Safety Report 4815558-8 (Version None)
Quarter: 2005Q4

REPORT INFORMATION
  Report Type: 
  Country: None (occurrence: None)
  Receive Date: 20051031
  Receipt Date: 20051018
  Transmission Date: 20060501
  Serious: Yes (Other)
  Sender: FDA-Public Use
  Company Number: 2005AC01675

PATIENT
  Age: 63 Year
  Sex: Male

DRUGS (6)
  1. NEXIUM [Suspect]
     Route: 048
  2. TENORMIN [Concomitant]
  3. ACIDUM ACETYLSALUCYLICUM CARDIO [Concomitant]
  4. OXAZEPAMUM [Concomitant]
  5. SIMVASTATINUM [Concomitant]
  6. HYZAAR [Concomitant]
     Dosage: 50/12.5 MG

REACTIONS (2)
  - HEART RATE INCREASED [None]
  - TREMOR [None]
